FAERS Safety Report 9777014 (Version 2)
Quarter: 2013Q4

REPORT INFORMATION
  Report Type: Spontaneous
  Country: US (occurrence: US)
  Receive Date: 20131221
  Receipt Date: 20131221
  Transmission Date: 20140711
  Serious: Yes (Other)
  Sender: FDA-Public Use
  Company Number: US-AMGEN-USASP2013083448

PATIENT
  Age: 93 Year
  Sex: Female
  Weight: 54.42 kg

DRUGS (1)
  1. PROLIA [Suspect]
     Indication: PRODUCT USED FOR UNKNOWN INDICATION
     Dosage: UNK
     Route: 065

REACTIONS (10)
  - Transient ischaemic attack [Unknown]
  - Swelling face [Unknown]
  - Lip swelling [Unknown]
  - Urticaria [Unknown]
  - Pruritus generalised [Unknown]
  - Choking [Unknown]
  - Lethargy [Unknown]
  - Malaise [Unknown]
  - Vasculitis [Unknown]
  - Asthenia [Unknown]
